FAERS Safety Report 19759667 (Version 2)
Quarter: 2021Q3

REPORT INFORMATION
  Report Type: Spontaneous
  Country: US (occurrence: US)
  Receive Date: 20210830
  Receipt Date: 20210906
  Transmission Date: 20211014
  Serious: No
  Sender: FDA-Public Use
  Company Number: US-SA-2021SA281654

PATIENT
  Age: 87 Year
  Sex: Male

DRUGS (2)
  1. LANTUS SOLOSTAR [Suspect]
     Active Substance: INSULIN GLARGINE
     Dosage: WHEN HE DIALED IN 18 UNITS, THE PLUNGER THAT GOES DOWN AFTER IT STOPPED AT 6 UNITS, QD
     Dates: start: 20210822
  2. LANTUS SOLOSTAR [Suspect]
     Active Substance: INSULIN GLARGINE
     Indication: TYPE 2 DIABETES MELLITUS
     Dosage: 18 IU, QD
     Route: 065

REACTIONS (3)
  - Device issue [Recovering/Resolving]
  - Incorrect dose administered by device [Recovering/Resolving]
  - Blood glucose increased [Recovering/Resolving]

NARRATIVE: CASE EVENT DATE: 20210822
